FAERS Safety Report 11416092 (Version 1)
Quarter: 2015Q3

REPORT INFORMATION
  Report Type: Spontaneous
  Country: US (occurrence: None)
  Receive Date: 20150824
  Receipt Date: 20150824
  Transmission Date: 20151125
  Serious: Yes (Other)
  Sender: FDA-Public Use
  Company Number: None

PATIENT
  Age: 55 Year
  Sex: Male

DRUGS (7)
  1. WARFARIN 5MG TARO PHARMACEUTICALS [Suspect]
     Active Substance: WARFARIN
     Route: 048
     Dates: start: 20150614, end: 20150630
  2. AORTIC VALVE REPLACEMENT WITH ST. JUDE VALVE [Concomitant]
  3. JANUMET [Concomitant]
     Active Substance: METFORMIN HYDROCHLORIDE\SITAGLIPTIN PHOSPHATE
  4. METOPROLOL SUCCINATE ER [Concomitant]
     Active Substance: METOPROLOL SUCCINATE
  5. GLIPIZIDE. [Concomitant]
     Active Substance: GLIPIZIDE
  6. AMLODIPINE [Concomitant]
     Active Substance: AMLODIPINE BESYLATE
  7. LOSARTAN. [Concomitant]
     Active Substance: LOSARTAN

REACTIONS (2)
  - Product substitution issue [None]
  - Pruritus generalised [None]

NARRATIVE: CASE EVENT DATE: 20150623
